FAERS Safety Report 5525128-4 (Version None)
Quarter: 2007Q4

REPORT INFORMATION
  Report Type: 
  Country: None (occurrence: None)
  Receive Date: 20071119
  Receipt Date: 20071119
  Transmission Date: 20080405
  Serious: Yes (Hospitalization)
  Sender: FDA-Public Use
  Company Number: None

PATIENT
  Age: 35 Year
  Sex: Male

DRUGS (5)
  1. DALTEPARIN SODIUM [Suspect]
     Indication: CARDIAC VALVE DISEASE
     Dosage: DALTEPARIN 6500 Q12H SQ
     Route: 058
  2. WARFARIN SODIUM [Suspect]
     Indication: CARDIAC VALVE DISEASE
     Dosage: WARFARIN PO
     Route: 048
  3. QUETIAPINE FUMARATE [Concomitant]
  4. FAMOTIDINE [Concomitant]
  5. PROMETHAZINE [Concomitant]

REACTIONS (4)
  - COAGULOPATHY [None]
  - HAEMORRHAGE INTRACRANIAL [None]
  - INTERNATIONAL NORMALISED RATIO DECREASED [None]
  - INTRAVENTRICULAR HAEMORRHAGE [None]
